FAERS Safety Report 9614564 (Version 1)
Quarter: 2013Q4

REPORT INFORMATION
  Report Type: Spontaneous
  Country: US (occurrence: None)
  Receive Date: 20131009
  Receipt Date: 20131009
  Transmission Date: 20140711
  Serious: Yes (Hospitalization, Other)
  Sender: FDA-Public Use
  Company Number: None

PATIENT
  Age: 62 Year
  Sex: Male

DRUGS (4)
  1. LIDOCAINE/EPINEPHRINE [Suspect]
     Indication: THORACIC OPERATION
     Dosage: 30CC  X1  SQ
     Route: 058
     Dates: start: 20130925
  2. ESMOLOL [Concomitant]
  3. LABETOLOL 200MG TEVA [Concomitant]
  4. MORPHINE [Concomitant]

REACTIONS (4)
  - Tachycardia [None]
  - Chest pain [None]
  - Back pain [None]
  - Product quality issue [None]
